FAERS Safety Report 9019720 (Version 4)
Quarter: 2013Q1

REPORT INFORMATION
  Report Type: Report from Study
  Country: ES (occurrence: ES)
  Receive Date: 20130118
  Receipt Date: 20130226
  Transmission Date: 20140127
  Serious: Yes (Other)
  Sender: FDA-Public Use
  Company Number: ES-ROCHE-1180755

PATIENT
  Age: 49 None
  Sex: Female

DRUGS (4)
  1. VEMURAFENIB [Suspect]
     Indication: MALIGNANT MELANOMA
     Route: 048
     Dates: start: 20121218, end: 20130114
  2. VEMURAFENIB [Suspect]
     Route: 048
  3. DABRAFENIB [Suspect]
     Indication: MALIGNANT MELANOMA
     Route: 048
     Dates: start: 20121218, end: 20130114
  4. TRAMETINIB [Suspect]
     Indication: MALIGNANT MELANOMA
     Route: 048
     Dates: start: 20121218, end: 20130114

REACTIONS (1)
  - Chorioretinopathy [Recovered/Resolved]
